FAERS Safety Report 21693058 (Version 1)
Quarter: 2022Q4

REPORT INFORMATION
  Report Type: Spontaneous
  Country: IR (occurrence: IR)
  Receive Date: 20221207
  Receipt Date: 20221207
  Transmission Date: 20230113
  Serious: Yes (Hospitalization)
  Sender: FDA-Public Use
  Company Number: IR-STRIDES ARCOLAB LIMITED-2022SP016361

PATIENT
  Age: 50 Year
  Sex: Female

DRUGS (7)
  1. DEXAMETHASONE [Suspect]
     Active Substance: DEXAMETHASONE
     Indication: Plasma cell myeloma
     Dosage: 40 MILLIGRAM PER DAY; VAD REGIMEN
     Route: 065
  2. DEXAMETHASONE [Suspect]
     Active Substance: DEXAMETHASONE
     Dosage: 40 MILLIGRAM PER DAY; ADMINISTERED EVERY 21 DAYS
     Route: 065
  3. DEXAMETHASONE [Suspect]
     Active Substance: DEXAMETHASONE
     Dosage: UNK; WITH CYCLOPHOSPHAMIDE
     Route: 065
  4. VINCRISTINE [Suspect]
     Active Substance: VINCRISTINE
     Indication: Plasma cell myeloma
     Dosage: 0.25 MILLIGRAM/SQ. METER; VAD REGIMEN
     Route: 065
  5. ADRIABLASTINA [Suspect]
     Active Substance: DOXORUBICIN
     Indication: Plasma cell myeloma
     Dosage: 9 MILLIGRAM/SQ. METER; VAD REGIMEN
     Route: 065
  6. THALIDOMIDE [Suspect]
     Active Substance: THALIDOMIDE
     Indication: Plasma cell myeloma
     Dosage: UNK; FOUR COURSES
     Route: 065
  7. BORTEZOMIB [Suspect]
     Active Substance: BORTEZOMIB
     Indication: Plasma cell myeloma
     Dosage: 1.3 MILLIGRAM/SQ. METER; RECEIVED ON DAY 0, 4, 8, 11 14 AND RECEIVED TOTAL 14 INJECTIONS OF BORTEZOM
     Route: 065

REACTIONS (5)
  - Febrile neutropenia [Unknown]
  - Mucosal inflammation [Unknown]
  - Cystitis haemorrhagic [Unknown]
  - BK virus infection [Unknown]
  - Drug ineffective [Unknown]
